FAERS Safety Report 18678317 (Version 2)
Quarter: 2021Q1

REPORT INFORMATION
  Report Type: Spontaneous
  Country: US (occurrence: US)
  Receive Date: 20201230
  Receipt Date: 20210114
  Transmission Date: 20210419
  Serious: Yes (Other)
  Sender: FDA-Public Use
  Company Number: US-AMGEN-USASP2020211498

PATIENT
  Age: 16 Year
  Sex: Female
  Weight: 44.1 kg

DRUGS (9)
  1. AIMOVIG [Suspect]
     Active Substance: ERENUMAB-AOOE
     Dosage: 140 MILLIGRAM
     Route: 065
     Dates: start: 20190715, end: 20190715
  2. HYOSCYAMINE. [Concomitant]
     Active Substance: HYOSCYAMINE
     Indication: DIARRHOEA
     Dosage: 0.125 MILLIGRAM, AS NECESSARY
  3. ONDANSETRON [Concomitant]
     Active Substance: ONDANSETRON
     Indication: NAUSEA
     Dosage: 4 MILLIGRAM, AS NECESSARY
  4. MESTINON [Concomitant]
     Active Substance: PYRIDOSTIGMINE BROMIDE
     Indication: POSTURAL ORTHOSTATIC TACHYCARDIA SYNDROME
     Dosage: 60 MILLIGRAM, BID
  5. ETODOLAC. [Concomitant]
     Active Substance: ETODOLAC
     Indication: MIGRAINE
     Dosage: 400 MILLIGRAM, AS NECESSARY
  6. OXCARBAZEPINE. [Concomitant]
     Active Substance: OXCARBAZEPINE
     Indication: NEURALGIA
     Dosage: 450 MILLIGRAM, BID
  7. NORETHINDRONE [NORETHISTERONE ACETATE] [Concomitant]
     Indication: MENSTRUAL CYCLE MANAGEMENT
     Dosage: 0.35 MILLIGRAM, QD
  8. METOCLOPRAMIDE. [Concomitant]
     Active Substance: METOCLOPRAMIDE
     Indication: MIGRAINE
     Dosage: 5 MILLIGRAM, AS NECESSARY
  9. AIMOVIG [Suspect]
     Active Substance: ERENUMAB-AOOE
     Indication: HEADACHE
     Dosage: 70 MILLIGRAM
     Route: 065
     Dates: start: 20190301, end: 2019

REACTIONS (7)
  - Dizziness [Recovered/Resolved]
  - Loss of consciousness [Recovered/Resolved]
  - Dyskinesia [Recovered/Resolved]
  - Confusional state [Recovered/Resolved]
  - Off label use [Unknown]
  - Urinary incontinence [Recovered/Resolved]
  - Anal incontinence [Recovered/Resolved]

NARRATIVE: CASE EVENT DATE: 20190301
